FAERS Safety Report 8709375 (Version 2)
Quarter: 2013Q4

REPORT INFORMATION
  Report Type: Spontaneous
  Country: US (occurrence: US)
  Receive Date: 20120806
  Receipt Date: 20131101
  Transmission Date: 20140711
  Serious: No
  Sender: FDA-Public Use
  Company Number: US-009507513-2012SP035506

PATIENT
  Age: 73 Year
  Sex: Male
  Weight: 99.77 kg

DRUGS (6)
  1. CLARITIN-D-24 [Suspect]
     Indication: MEDICAL OBSERVATION
     Dosage: 10 MG, QPM
     Route: 048
     Dates: start: 201204
  2. CLARITIN-D-24 [Suspect]
     Indication: SINUS CONGESTION
  3. OXYMETAZOLINE HYDROCHLORIDE [Concomitant]
     Indication: PRODUCT USED FOR UNKNOWN INDICATION
     Dosage: UNK UNK, UNKNOWN
  4. LEVOTHYROXINE SODIUM [Concomitant]
     Indication: THYROID DISORDER
     Dosage: UNK, UNKNOWN
  5. SYMBICORT [Concomitant]
     Indication: CHRONIC OBSTRUCTIVE PULMONARY DISEASE
     Dosage: UNK, UNKNOWN
  6. SPIRIVA [Concomitant]
     Indication: CHRONIC OBSTRUCTIVE PULMONARY DISEASE
     Dosage: UNK, UNKNOWN

REACTIONS (2)
  - Throat tightness [Recovered/Resolved]
  - Dysphagia [Recovered/Resolved]
